FAERS Safety Report 7883742-5 (Version None)
Quarter: 2011Q4

REPORT INFORMATION
  Report Type: 
  Country: None (occurrence: None)
  Receive Date: 20111102
  Receipt Date: 20111028
  Transmission Date: 20120403
  Serious: Yes (Death)
  Sender: FDA-Public Use
  Company Number: CO-PFIZER INC-2011265746

PATIENT
  Sex: Male

DRUGS (4)
  1. LIPITOR [Suspect]
     Indication: DYSLIPIDAEMIA
     Dosage: 10 MG, 1X/DAY
     Route: 048
     Dates: start: 20040922
  2. NORVASC [Suspect]
     Indication: HYPERTENSION
     Dosage: 10 MG, 1X/DAY
     Route: 048
     Dates: start: 20040922
  3. CLONIDINE [Concomitant]
     Dosage: 150 MG, 2X/DAY
     Route: 048
  4. OLMESARTAN MEDOXOMIL AND HYDROCHLOROTHIZIDE [Suspect]
     Indication: HYPERTENSION
     Dosage: [OLMESARTAN 20 MG/ HYDROCHLOROTHIAZIDE 12.5 MG], PER DAY
     Route: 048
     Dates: start: 20040922

REACTIONS (1)
  - DEATH [None]
